FAERS Safety Report 7263632-1 (Version None)
Quarter: 2011Q1

REPORT INFORMATION
  Report Type: 
  Country: None (occurrence: None)
  Receive Date: 20110130
  Receipt Date: 20101025
  Transmission Date: 20110831
  Serious: No
  Sender: FDA-Public Use
  Company Number: US-ABBOTT-10P-163-0682159-00

PATIENT
  Sex: Female
  Weight: 65.376 kg

DRUGS (3)
  1. HUMIRA [Suspect]
     Indication: RHEUMATOID ARTHRITIS
     Dates: start: 20060411
  2. CELEBREX [Concomitant]
     Indication: RHEUMATOID ARTHRITIS
  3. TRAZODONE [Concomitant]
     Indication: SLEEP DISORDER

REACTIONS (1)
  - MYCOBACTERIUM TUBERCULOSIS COMPLEX TEST POSITIVE [None]
